FAERS Safety Report 26132313 (Version 1)
Quarter: 2025Q4

REPORT INFORMATION
  Report Type: Report from Study
  Country: JP (occurrence: JP)
  Receive Date: 20251208
  Receipt Date: 20251208
  Transmission Date: 20260118
  Serious: Yes (Death, Other)
  Sender: ABBVIE
  Company Number: JP-ABBVIE-6578246

PATIENT

DRUGS (2)
  1. VENCLEXTA [Suspect]
     Active Substance: VENETOCLAX
     Indication: Acute myeloid leukaemia
     Route: 048
  2. AZACITIDINE [Concomitant]
     Active Substance: AZACITIDINE
     Indication: Acute myeloid leukaemia

REACTIONS (7)
  - Death [Fatal]
  - Acute myeloid leukaemia recurrent [Unknown]
  - Haematotoxicity [Unknown]
  - Myelosuppression [Unknown]
  - Drug ineffective [Unknown]
  - Acute myeloid leukaemia [Unknown]
  - Unevaluable event [Unknown]
